FAERS Safety Report 5519713-3 (Version None)
Quarter: 2007Q4

REPORT INFORMATION
  Report Type: 
  Country: None (occurrence: None)
  Receive Date: 20071116
  Receipt Date: 20071102
  Transmission Date: 20080405
  Serious: Yes (Other)
  Sender: FDA-Public Use
  Company Number: JP-PFIZER INC-2007095411

PATIENT
  Sex: Male

DRUGS (6)
  1. MIGLITOL TABLET [Suspect]
     Indication: DIABETES MELLITUS
     Route: 048
     Dates: start: 20070602, end: 20070922
  2. EPALRESTAT [Suspect]
     Route: 048
     Dates: start: 20070616, end: 20070922
  3. GLYCORAN [Suspect]
     Route: 048
     Dates: start: 20070712, end: 20070922
  4. PLETAL [Suspect]
     Route: 048
  5. JUVELA NICOTINATE [Concomitant]
     Route: 048
  6. PRAVASTATIN [Concomitant]
     Route: 048

REACTIONS (4)
  - ALANINE AMINOTRANSFERASE INCREASED [None]
  - ASPARTATE AMINOTRANSFERASE INCREASED [None]
  - HEPATIC FUNCTION ABNORMAL [None]
  - TRANSAMINASES INCREASED [None]
